FAERS Safety Report 9285853 (Version 3)
Quarter: 2013Q4

REPORT INFORMATION
  Report Type: Spontaneous
  Country: FR (occurrence: FR)
  Receive Date: 20130513
  Receipt Date: 20131126
  Transmission Date: 20140711
  Serious: Yes (Hospitalization)
  Sender: FDA-Public Use
  Company Number: FR-PFIZER INC-2013141903

PATIENT
  Age: 70 Year
  Sex: Male

DRUGS (11)
  1. TAZOCILLINE [Suspect]
     Indication: OSTEOMYELITIS
     Dosage: 4 G, 2X/DAY
     Route: 042
     Dates: start: 20120625, end: 20120911
  2. CIFLOX [Concomitant]
     Indication: OSTEOMYELITIS
     Dosage: 500 MG, 1X/DAY
     Route: 048
     Dates: start: 20120702, end: 20120911
  3. TEMERIT [Concomitant]
  4. TAHOR 80 [Concomitant]
     Dosage: UNK
  5. KARDEGIC [Concomitant]
  6. LASILIX 500 [Concomitant]
     Dosage: UNK
  7. COUMADINE [Concomitant]
     Dosage: UNK
  8. XATRAL - SLOW RELEASE [Concomitant]
     Dosage: UNK
  9. DOLIPRANE [Concomitant]
  10. LANTUS [Concomitant]
  11. NOVORAPID [Concomitant]

REACTIONS (3)
  - Dermatitis exfoliative [Recovered/Resolved]
  - Oedema [Recovered/Resolved]
  - Eosinophilia [Recovered/Resolved]
